FAERS Safety Report 9340504 (Version 1)
Quarter: 2013Q2

REPORT INFORMATION
  Report Type: Spontaneous
  Country: US (occurrence: None)
  Receive Date: 20130610
  Receipt Date: 20130610
  Transmission Date: 20140414
  Serious: Yes (Hospitalization, Other)
  Sender: FDA-Public Use
  Company Number: None

PATIENT
  Age: 66 Year
  Sex: Female
  Weight: 76.3 kg

DRUGS (1)
  1. ELIQUIS [Suspect]
     Route: 048
     Dates: start: 20130401

REACTIONS (3)
  - Hepatic enzyme increased [None]
  - Nausea [None]
  - Vomiting [None]
